FAERS Safety Report 12998211 (Version 1)
Quarter: 2016Q4

REPORT INFORMATION
  Report Type: Spontaneous
  Country: US (occurrence: US)
  Receive Date: 20161202
  Receipt Date: 20161202
  Transmission Date: 20170207
  Serious: Yes (Hospitalization)
  Sender: FDA-Public Use
  Company Number: None

PATIENT
  Age: 72 Year
  Sex: Male
  Weight: 154.2 kg

DRUGS (4)
  1. LISINOPRIL-HCTZ [Concomitant]
     Active Substance: HYDROCHLOROTHIAZIDE\LISINOPRIL
  2. BACTRIM DS [Suspect]
     Active Substance: SULFAMETHOXAZOLE\TRIMETHOPRIM
     Indication: URINARY TRACT INFECTION
     Route: 048
     Dates: start: 20161129, end: 20161202
  3. FUROSEMIDE. [Concomitant]
     Active Substance: FUROSEMIDE
  4. NSAID [Concomitant]
     Active Substance: UNSPECIFIED INGREDIENT

REACTIONS (4)
  - Renal tubular necrosis [None]
  - Lethargy [None]
  - Dyskinesia [None]
  - Hypotension [None]

NARRATIVE: CASE EVENT DATE: 20161202
